FAERS Safety Report 9801713 (Version 1)
Quarter: 2014Q1

REPORT INFORMATION
  Report Type: Spontaneous
  Country: US (occurrence: US)
  Receive Date: 20140107
  Receipt Date: 20140107
  Transmission Date: 20141002
  Serious: Yes (Death, Hospitalization, Other)
  Sender: FDA-Public Use
  Company Number: US-UCBSA-108377

PATIENT
  Age: 87 Year
  Sex: Male

DRUGS (5)
  1. ACETAMINOPHEN/HYDROCODONE [Suspect]
     Route: 048
  2. AMLODIPINE [Suspect]
     Route: 048
  3. DONEPEZIL [Suspect]
     Route: 048
  4. LORAZEPAM [Suspect]
     Route: 048
  5. LEVOTHYROXINE [Suspect]
     Route: 048

REACTIONS (1)
  - Completed suicide [Fatal]
